FAERS Safety Report 23564045 (Version 2)
Quarter: 2024Q3

REPORT INFORMATION
  Report Type: Report from Study
  Country: US (occurrence: US)
  Receive Date: 20240226
  Receipt Date: 20240922
  Transmission Date: 20241017
  Serious: No
  Sender: SANDOZ
  Company Number: US-SANDOZ-SDZ2023US029254

PATIENT
  Age: 14 Year
  Sex: Male

DRUGS (6)
  1. OMNITROPE [Suspect]
     Active Substance: SOMATROPIN
     Indication: Short stature
     Dosage: 2.3 MG, QD
     Route: 058
     Dates: start: 20230831
  2. OMNITROPE [Suspect]
     Active Substance: SOMATROPIN
     Indication: Short stature
     Dosage: 2.3 MG, QD
     Route: 058
     Dates: start: 20230831
  3. OMNITROPE [Suspect]
     Active Substance: SOMATROPIN
     Dosage: 2.3 MG, QD
     Route: 058
     Dates: start: 20230901
  4. OMNITROPE [Suspect]
     Active Substance: SOMATROPIN
     Dosage: 2.3 MG, QD
     Route: 058
     Dates: start: 20230901
  5. OMNITROPE [Suspect]
     Active Substance: SOMATROPIN
     Dosage: 2.3 MG 2 DOSE EVERY
     Route: 058
     Dates: start: 20230831
  6. OMNITROPE [Suspect]
     Active Substance: SOMATROPIN
     Dosage: 2.3 MG 2 DOSE EVERY
     Route: 058
     Dates: start: 20230831

REACTIONS (6)
  - Injection site discomfort [Unknown]
  - Wrong technique in device usage process [Unknown]
  - Incorrect route of product administration [Unknown]
  - Product use in unapproved indication [Unknown]
  - Product quality issue [Unknown]
  - Product leakage [Unknown]

NARRATIVE: CASE EVENT DATE: 20230831
